FAERS Safety Report 5008239-1 (Version None)
Quarter: 2006Q2

REPORT INFORMATION
  Report Type: 
  Country: None (occurrence: None)
  Receive Date: 20060523
  Receipt Date: 20060517
  Transmission Date: 20061013
  Serious: Yes (Hospitalization)
  Sender: FDA-Public Use
  Company Number: 2006CG00892

PATIENT
  Age: 20882 Day
  Sex: Male
  Weight: 80 kg

DRUGS (4)
  1. NEXIUM [Suspect]
     Route: 048
     Dates: start: 20050803
  2. METHOTREXATE [Suspect]
     Route: 048
     Dates: start: 20050803
  3. REMICADE [Suspect]
     Indication: ANKYLOSING SPONDYLITIS
     Route: 042
     Dates: start: 20051020, end: 20060221
  4. NAPROXEN [Suspect]
     Route: 048
     Dates: start: 20051020

REACTIONS (3)
  - PRURITUS [None]
  - PUSTULAR PSORIASIS [None]
  - RASH MACULO-PAPULAR [None]
